FAERS Safety Report 6532522-1 (Version None)
Quarter: 2009Q4

REPORT INFORMATION
  Report Type: 
  Country: None (occurrence: None)
  Receive Date: 20091217
  Receipt Date: 20091207
  Transmission Date: 20100525
  Serious: Yes (Hospitalization, Other)
  Sender: FDA-Public Use
  Company Number: THYM-1001204

PATIENT
  Age: 44 Year
  Sex: Female
  Weight: 125 kg

DRUGS (6)
  1. THYMOGLOBULIN [Suspect]
     Indication: RENAL TRANSPLANT
     Dosage: 6 MG/KG TOTAL DOSE OVER 5 DAYS, INTRAVENOUS
     Route: 042
     Dates: start: 20090826, end: 20090830
  2. BACTRIM [Concomitant]
  3. CELLCEPT [Concomitant]
  4. PREDNISONE [Concomitant]
  5. TACROLIMUS [Concomitant]
  6. GANCICLOVIR [Concomitant]

REACTIONS (5)
  - COMPLICATIONS OF TRANSPLANTED KIDNEY [None]
  - DIALYSIS [None]
  - IMMUNOSUPPRESSANT DRUG LEVEL INCREASED [None]
  - KIDNEY TRANSPLANT REJECTION [None]
  - SERUM SICKNESS [None]
